FAERS Safety Report 5248259-5 (Version None)
Quarter: 2007Q1

REPORT INFORMATION
  Report Type: 
  Country: None (occurrence: None)
  Receive Date: 20070227
  Receipt Date: 20061023
  Transmission Date: 20070707
  Serious: No
  Sender: FDA-Public Use
  Company Number: US-BRISTOL-MYERS SQUIBB COMPANY-13532403

PATIENT
  Age: 63 Year
  Sex: Male

DRUGS (9)
  1. ATENOLOL [Suspect]
  2. GLIPIZIDE [Suspect]
  3. LISINOPRIL [Suspect]
  4. METFORMIN HCL [Suspect]
  5. HYTRIN [Suspect]
  6. NORVASC [Suspect]
  7. OMACOR [Suspect]
  8. ZETIA [Suspect]
  9. HYDROCHLOROTHIAZIDE [Suspect]

REACTIONS (1)
  - SEXUAL DYSFUNCTION [None]
